FAERS Safety Report 4458145-6 (Version None)
Quarter: 2004Q3

REPORT INFORMATION
  Report Type: 
  Country: None (occurrence: None)
  Receive Date: 20040924
  Receipt Date: 20040920
  Transmission Date: 20050211
  Serious: Yes (Disabling)
  Sender: FDA-Public Use
  Company Number: GB-GLAXOSMITHKLINE-B0345824A

PATIENT
  Age: 66 Year
  Sex: Female

DRUGS (3)
  1. AVANDIA [Suspect]
     Indication: DIABETES MELLITUS NON-INSULIN-DEPENDENT
     Dosage: 4MG UNKNOWN
     Route: 048
     Dates: start: 20030101, end: 20040526
  2. ATORVASTATIN CALCIUM [Concomitant]
     Indication: BLOOD CHOLESTEROL INCREASED
     Dosage: 10MG PER DAY
     Route: 048
     Dates: start: 20040101, end: 20040501
  3. GLICLAZIDE [Concomitant]
     Indication: DIABETES MELLITUS
     Dosage: 320MG PER DAY
     Route: 048
     Dates: start: 20020101

REACTIONS (1)
  - ALOPECIA [None]
